FAERS Safety Report 20645750 (Version 4)
Quarter: 2022Q2

REPORT INFORMATION
  Report Type: Report from Study
  Country: ES (occurrence: ES)
  Receive Date: 20220328
  Receipt Date: 20220503
  Transmission Date: 20220721
  Serious: Yes (Hospitalization, Disabling, Other)
  Sender: FDA-Public Use
  Company Number: ES-ABBVIE-19P-144-2722260-00

PATIENT
  Age: 18 Year
  Sex: Female
  Weight: 52 kg

DRUGS (12)
  1. HUMIRA [Suspect]
     Active Substance: ADALIMUMAB
     Indication: Crohn^s disease
     Route: 058
     Dates: start: 20160205, end: 20171019
  2. HUMIRA [Suspect]
     Active Substance: ADALIMUMAB
     Route: 058
     Dates: start: 20171020, end: 20180223
  3. HUMIRA [Suspect]
     Active Substance: ADALIMUMAB
     Route: 058
     Dates: start: 20180223, end: 20180824
  4. HUMIRA [Suspect]
     Active Substance: ADALIMUMAB
     Route: 058
     Dates: start: 20180907, end: 20181125
  5. HUMIRA [Suspect]
     Active Substance: ADALIMUMAB
     Route: 058
     Dates: start: 20181126, end: 20191031
  6. HUMIRA [Suspect]
     Active Substance: ADALIMUMAB
     Route: 058
     Dates: start: 20191101, end: 20210708
  7. AZATHIOPRINE [Suspect]
     Active Substance: AZATHIOPRINE
     Indication: Crohn^s disease
     Route: 048
     Dates: start: 20140214, end: 20171019
  8. AZATHIOPRINE [Suspect]
     Active Substance: AZATHIOPRINE
     Route: 048
     Dates: start: 20180110, end: 20210708
  9. OMEPRAZOLE [Concomitant]
     Active Substance: OMEPRAZOLE
     Indication: Gastritis
     Route: 048
     Dates: start: 20160128
  10. SYNALAR [Concomitant]
     Active Substance: FLUOCINOLONE ACETONIDE
     Indication: Crohn^s disease
     Route: 054
     Dates: start: 20160410
  11. SALOFALK [Concomitant]
     Indication: Crohn^s disease
     Route: 054
     Dates: start: 20181126
  12. MOVICOL [Concomitant]
     Active Substance: POLYETHYLENE GLYCOL 3350\POTASSIUM CHLORIDE\SODIUM BICARBONATE\SODIUM CHLORIDE
     Indication: Constipation
     Route: 048
     Dates: start: 20181126

REACTIONS (2)
  - Rectal stenosis [Not Recovered/Not Resolved]
  - Faecaloma [Not Recovered/Not Resolved]

NARRATIVE: CASE EVENT DATE: 20190321
